FAERS Safety Report 15234180 (Version 1)
Quarter: 2018Q3

REPORT INFORMATION
  Report Type: Spontaneous
  Country: US (occurrence: US)
  Receive Date: 20180802
  Receipt Date: 20180802
  Transmission Date: 20181010
  Serious: No
  Sender: FDA-Public Use
  Company Number: US-JNJFOC-20180722858

PATIENT
  Sex: Female
  Weight: 97.6 kg

DRUGS (3)
  1. REMICADE [Suspect]
     Active Substance: INFLIXIMAB
     Indication: PRODUCT USED FOR UNKNOWN INDICATION
     Route: 042
     Dates: start: 2008, end: 2013
  2. REMICADE [Suspect]
     Active Substance: INFLIXIMAB
     Indication: PRODUCT USED FOR UNKNOWN INDICATION
     Route: 042
     Dates: start: 20170905
  3. REMICADE [Suspect]
     Active Substance: INFLIXIMAB
     Indication: PRODUCT USED FOR UNKNOWN INDICATION
     Route: 042
     Dates: start: 20170919

REACTIONS (8)
  - Anxiety [Unknown]
  - Paraesthesia [Unknown]
  - Hypersensitivity [Unknown]
  - Dyspnoea [Unknown]
  - Flushing [Unknown]
  - Infusion related reaction [Unknown]
  - Feeling hot [Unknown]
  - Condition aggravated [Unknown]
